FAERS Safety Report 22073519 (Version 2)
Quarter: 2023Q1

REPORT INFORMATION
  Report Type: Report from Study
  Country: IL (occurrence: IL)
  Receive Date: 20230308
  Receipt Date: 20230322
  Transmission Date: 20230417
  Serious: Yes (Other)
  Sender: FDA-Public Use
  Company Number: IL-002147023-NVSC2023IL012391

PATIENT
  Age: 76 Year
  Sex: Female

DRUGS (1)
  1. KISQALI [Suspect]
     Active Substance: RIBOCICLIB
     Indication: Breast cancer metastatic
     Dosage: 400 MG, QD
     Route: 048
     Dates: start: 20230106

REACTIONS (5)
  - Back pain [Not Recovered/Not Resolved]
  - Groin pain [Not Recovered/Not Resolved]
  - Muscle strain [Not Recovered/Not Resolved]
  - Dyspnoea [Not Recovered/Not Resolved]
  - Non-cardiac chest pain [Not Recovered/Not Resolved]

NARRATIVE: CASE EVENT DATE: 20230116
